FAERS Safety Report 6618935-8 (Version None)
Quarter: 2010Q1

REPORT INFORMATION
  Report Type: 
  Country: None (occurrence: None)
  Receive Date: 20100308
  Receipt Date: 20100223
  Transmission Date: 20100710
  Serious: Yes (Hospitalization)
  Sender: FDA-Public Use
  Company Number: US-NOVOPROD-292556

PATIENT
  Sex: Female
  Weight: 75.5 kg

DRUGS (27)
  1. NOVORAPID FLEXPEN [Suspect]
     Indication: TYPE 2 DIABETES MELLITUS
     Dosage: 10+6+6 IU
     Route: 058
     Dates: start: 20090917, end: 20091004
  2. NOVORAPID FLEXPEN [Suspect]
     Dosage: 61 IU, SINGLE
     Dates: start: 20091004, end: 20091004
  3. NOVORAPID FLEXPEN [Suspect]
     Dosage: 10+6+6 IU
     Route: 058
     Dates: start: 20091005
  4. SIBA FLEXPEN [Suspect]
     Indication: TYPE 2 DIABETES MELLITUS
     Dosage: 61 IU, QD
     Route: 058
     Dates: start: 20090917, end: 20091004
  5. SIBA FLEXPEN [Suspect]
     Dosage: 61 IU, QD
     Dates: start: 20091005
  6. FUROSEMIDE [Concomitant]
     Indication: DIURETIC THERAPY
     Dosage: 20 MG, QD
     Route: 048
     Dates: start: 20010830
  7. FUROSEMIDE [Concomitant]
     Indication: OEDEMA PERIPHERAL
  8. FLUOXETINE [Concomitant]
     Indication: DEPRESSION
     Dosage: 40 MG, QD
     Route: 048
     Dates: start: 20060615
  9. LAMICTAL [Concomitant]
     Indication: NEUROPATHY PERIPHERAL
     Dosage: 400 MG, QD
     Route: 048
     Dates: start: 20051117
  10. METOPROLOL TARTRATE [Concomitant]
     Indication: HYPERTENSION
     Dosage: 50 MG, QD
     Route: 048
     Dates: start: 20080804
  11. PRILOSEC [Concomitant]
     Indication: GASTROOESOPHAGEAL REFLUX DISEASE
     Dosage: 40 MG, QD
     Route: 048
     Dates: start: 19930101
  12. LIPITOR [Concomitant]
     Indication: HYPERLIPIDAEMIA
     Dosage: 20 MG, QD
     Route: 048
     Dates: start: 20080804
  13. ASPIRIN [Concomitant]
     Indication: CARDIOVASCULAR EVENT PROPHYLAXIS
     Dosage: 81 MG, QD
     Route: 048
     Dates: start: 20010830
  14. IMODIUM                            /00384302/ [Concomitant]
     Indication: DIARRHOEA
     Dosage: UNK, PRN
     Route: 048
  15. LODINE [Concomitant]
     Indication: MYALGIA
     Dosage: 400 MG, QD
     Route: 048
     Dates: start: 20070621
  16. VITAMIN E                          /00110501/ [Concomitant]
     Indication: MEDICAL DIET
     Dosage: 400 IU, QD
     Route: 048
     Dates: start: 20080804
  17. VITAMIN B                          /00056102/ [Concomitant]
     Indication: MEDICAL DIET
     Dosage: 50 MG, QD
     Route: 048
     Dates: start: 20080804
  18. FLAXSEED OIL [Concomitant]
     Indication: MEDICAL DIET
     Dosage: 1000 MG, QD
     Route: 048
     Dates: start: 20080804
  19. CALCIUM [Concomitant]
     Indication: MEDICAL DIET
     Dosage: 600 MG, QD
     Route: 048
     Dates: start: 20080804
  20. HUMALOG MIX 75/25 [Concomitant]
     Indication: DIABETES MELLITUS
     Dosage: 37 U, QAM
     Dates: start: 20010830, end: 20090916
  21. HUMALOG MIX 75/25 [Concomitant]
     Dosage: 35 U, QPM
     Dates: start: 20010830, end: 20090916
  22. DIFLUCAN [Concomitant]
     Indication: FUNGAL INFECTION
     Dosage: 150 MG, QD
     Route: 048
     Dates: start: 20090903, end: 20090903
  23. DIFLUCAN [Concomitant]
     Dosage: 200 MG
     Route: 048
     Dates: start: 20090914, end: 20090914
  24. DIFLUCAN [Concomitant]
     Dosage: 100 MG
     Route: 048
     Dates: start: 20090915, end: 20090918
  25. HYDROCORTISONE [Concomitant]
     Indication: DRY SKIN
     Dosage: 1 %, QD
     Dates: start: 20090903
  26. RHINOCORT [Concomitant]
     Indication: HYPERSENSITIVITY
     Dosage: 1 SPRAY, PRN
  27. HYMOX [Concomitant]
     Indication: DIARRHOEA
     Dosage: UNK, PRN

REACTIONS (1)
  - WRONG DRUG ADMINISTERED [None]
